FAERS Safety Report 9434688 (Version 1)
Quarter: 2013Q3

REPORT INFORMATION
  Report Type: Spontaneous
  Country: FR (occurrence: FR)
  Receive Date: 20130801
  Receipt Date: 20130801
  Transmission Date: 20140515
  Serious: Yes (Hospitalization)
  Sender: FDA-Public Use
  Company Number: FR-JNJFOC-20130716870

PATIENT
  Age: 84 Year
  Sex: Female

DRUGS (18)
  1. CONTRAMAL [Suspect]
     Indication: OSTEOARTHRITIS
     Route: 048
     Dates: end: 20130616
  2. FLAGYL [Suspect]
     Indication: CLOSTRIDIUM DIFFICILE INFECTION
     Route: 048
     Dates: start: 20130604, end: 20130611
  3. COUMADINE [Suspect]
     Indication: ARRHYTHMIA SUPRAVENTRICULAR
     Route: 048
     Dates: start: 20130613, end: 20130613
  4. TIORFAN [Suspect]
     Indication: DIARRHOEA
     Route: 048
     Dates: end: 20130614
  5. CALCIPARINE [Suspect]
     Indication: PRODUCT USED FOR UNKNOWN INDICATION
     Route: 042
     Dates: start: 20130614, end: 20130616
  6. CALCIPARINE [Suspect]
     Indication: PRODUCT USED FOR UNKNOWN INDICATION
     Route: 042
     Dates: start: 20130605, end: 20130610
  7. IMODIUM [Concomitant]
     Indication: DIARRHOEA
     Route: 048
     Dates: start: 201304, end: 201304
  8. CORDARONE [Concomitant]
     Indication: PRODUCT USED FOR UNKNOWN INDICATION
     Route: 065
  9. SMECTA [Concomitant]
     Indication: DIARRHOEA
     Route: 048
     Dates: start: 201304, end: 201304
  10. VANCOMYCINE [Concomitant]
     Indication: DIARRHOEA
     Route: 048
     Dates: start: 20130612
  11. INEXIUM [Concomitant]
     Indication: PRODUCT USED FOR UNKNOWN INDICATION
     Route: 065
  12. LEVOTHYROX [Concomitant]
     Indication: PRODUCT USED FOR UNKNOWN INDICATION
     Route: 048
  13. ACUPAN [Concomitant]
     Indication: OSTEOARTHRITIS
     Route: 042
     Dates: start: 20130612
  14. SPECIAFOLDINE [Concomitant]
     Indication: PRODUCT USED FOR UNKNOWN INDICATION
     Route: 048
     Dates: start: 20130607, end: 20130612
  15. SPECIAFOLDINE [Concomitant]
     Indication: PRODUCT USED FOR UNKNOWN INDICATION
     Route: 048
     Dates: end: 20130606
  16. AMLOR [Concomitant]
     Indication: PRODUCT USED FOR UNKNOWN INDICATION
     Route: 048
     Dates: end: 20130606
  17. TAHOR [Concomitant]
     Indication: PRODUCT USED FOR UNKNOWN INDICATION
     Route: 048
     Dates: start: 20130605
  18. DOLIPRANE [Concomitant]
     Indication: PRODUCT USED FOR UNKNOWN INDICATION
     Route: 048
     Dates: start: 20130608

REACTIONS (8)
  - Confusional state [Recovered/Resolved]
  - International normalised ratio increased [Recovered/Resolved]
  - Psychomotor skills impaired [Recovered/Resolved]
  - Coagulopathy [Recovered/Resolved]
  - Activated partial thromboplastin time prolonged [Recovered/Resolved]
  - Prothrombin level decreased [Recovering/Resolving]
  - Factor VII deficiency [Recovered/Resolved]
  - Coagulation factor X level decreased [Recovering/Resolving]
